FAERS Safety Report 4659850-9 (Version None)
Quarter: 2005Q2

REPORT INFORMATION
  Report Type: 
  Country: None (occurrence: None)
  Receive Date: 20050510
  Receipt Date: 20050427
  Transmission Date: 20051028
  Serious: Yes (Hospitalization, Other)
  Sender: FDA-Public Use
  Company Number: HQWYE418828APR05

PATIENT
  Age: 61 Year
  Sex: Male

DRUGS (14)
  1. CORDARONE [Suspect]
     Indication: CARDIAC FAILURE
     Dosage: 200 MG TABLET
     Route: 048
     Dates: start: 20041201
  2. ENALAPRIL MALEATE [Concomitant]
     Route: 042
  3. COZAAR [Concomitant]
  4. HYZAAR [Concomitant]
  5. CYTARABINE [Suspect]
     Indication: ACUTE MYELOID LEUKAEMIA
     Route: 042
     Dates: start: 20041123, end: 20041203
  6. CYTARABINE [Suspect]
     Indication: CHRONIC LYMPHOCYTIC LEUKAEMIA
     Route: 042
     Dates: start: 20041123, end: 20041203
  7. DOXORUBICIN (DOXORUBICIN, ) [Suspect]
     Indication: ACUTE MYELOID LEUKAEMIA
     Route: 042
     Dates: start: 20041123, end: 20041203
  8. DOXORUBICIN (DOXORUBICIN, ) [Suspect]
     Indication: CHRONIC LYMPHOCYTIC LEUKAEMIA
     Route: 042
     Dates: start: 20041123, end: 20041203
  9. CYCLOPHOSPHAMIDE [Suspect]
     Route: 042
     Dates: start: 20041123, end: 20041203
  10. ETOPOSIDE [Suspect]
     Dosage: 100 MG SOLUTION
     Route: 042
     Dates: start: 20041123, end: 20041203
  11. PYOSTACINE (PRITINAMYCIN,) [Suspect]
     Dosage: A FEW WEEKS
     Route: 048
     Dates: start: 20041123, end: 20050101
  12. TAZOCILLINE (PIPERACILLIN/TAZOBACTAM, INJECTION) [Suspect]
     Dosage: A FEW DAYS
     Route: 042
     Dates: start: 20041201, end: 20041201
  13. TENORMIN [Suspect]
     Dates: start: 20040101
  14. ALLOPURINOL [Suspect]
     Dosage: A FEW DAYS
     Route: 048
     Dates: start: 20041119, end: 20041201

REACTIONS (3)
  - DERMATITIS EXFOLIATIVE [None]
  - HAEMOGLOBIN DECREASED [None]
  - PLATELET COUNT DECREASED [None]
